FAERS Safety Report 23927649 (Version 1)
Quarter: 2024Q2

REPORT INFORMATION
  Report Type: Other
  Country: SG (occurrence: SG)
  Receive Date: 20240531
  Receipt Date: 20240531
  Transmission Date: 20240716
  Serious: Yes (Hospitalization, Other)
  Sender: FDA-Public Use
  Company Number: SG-BP-2024-1033

PATIENT
  Age: 63 Year
  Sex: Male

DRUGS (6)
  1. PRIMAQUINE [Suspect]
     Active Substance: PRIMAQUINE
     Indication: Pneumocystis jirovecii pneumonia
     Dosage: 30 MG, QD
     Route: 065
  2. BORTEZOMIB [Concomitant]
     Active Substance: BORTEZOMIB
     Indication: Plasma cell myeloma
  3. DARATUMUMAB [Concomitant]
     Active Substance: DARATUMUMAB
     Indication: Plasma cell myeloma
  4. DEXAMETHASONE [Concomitant]
     Active Substance: DEXAMETHASONE
     Indication: Plasma cell myeloma
  5. CLINDAMYCIN [Concomitant]
     Active Substance: CLINDAMYCIN
     Indication: Pneumocystis jirovecii pneumonia
     Route: 042
  6. HYDROCORTISONE [Concomitant]
     Active Substance: HYDROCORTISONE
     Indication: Pneumocystis jirovecii pneumonia
     Route: 042

REACTIONS (1)
  - Thrombotic microangiopathy [Recovered/Resolved]
